FAERS Safety Report 8489365-1 (Version None)
Quarter: 2012Q2

REPORT INFORMATION
  Report Type: 
  Country: None (occurrence: None)
  Receive Date: 20120628
  Receipt Date: 20120628
  Transmission Date: 20120825
  Serious: Yes (Other)
  Sender: FDA-Public Use
  Company Number: None

PATIENT
  Age: 32 Year
  Sex: Male
  Weight: 77.1115 kg

DRUGS (1)
  1. PROPECIA [Suspect]
     Indication: ALOPECIA
     Dosage: 1 PILL PER DAY PO ALL INFORMATION IS INCLUDED IN THE OTHER PAGES
     Route: 048
     Dates: start: 20080207, end: 20100410

REACTIONS (5)
  - PANIC ATTACK [None]
  - SEXUAL DYSFUNCTION [None]
  - INSOMNIA [None]
  - ANXIETY [None]
  - QUALITY OF LIFE DECREASED [None]
